FAERS Safety Report 7099871-2 (Version None)
Quarter: 2010Q4

REPORT INFORMATION
  Report Type: 
  Country: None (occurrence: None)
  Receive Date: 20101112
  Receipt Date: 20101110
  Transmission Date: 20110411
  Serious: Yes (Disabling, Other)
  Sender: FDA-Public Use
  Company Number: FR-PFIZER INC-2010133681

PATIENT
  Age: 46 Year
  Sex: Female
  Weight: 50 kg

DRUGS (5)
  1. CHAMPIX [Suspect]
     Indication: SMOKING CESSATION THERAPY
     Dosage: 1 MG/DAY
     Route: 048
     Dates: start: 20100918, end: 20100920
  2. CHAMPIX [Suspect]
     Dosage: 1.5 MG/DAY
     Route: 048
     Dates: start: 20100921, end: 20100924
  3. CHAMPIX [Suspect]
     Dosage: 2 MG/DAY
     Route: 048
     Dates: start: 20100925, end: 20101001
  4. CHAMPIX [Suspect]
     Dosage: 1 MG, 2X/DAY
     Route: 048
     Dates: start: 20101002, end: 20101008
  5. CIPROFLOXACIN [Concomitant]
     Indication: ANTIBIOTIC THERAPY
     Dosage: 1000 MG IN 2 INTAKES
     Route: 048
     Dates: start: 20100929, end: 20101002

REACTIONS (1)
  - TOXIC SKIN ERUPTION [None]
